FAERS Safety Report 8118405-4 (Version None)
Quarter: 2012Q1

REPORT INFORMATION
  Report Type: 
  Country: None (occurrence: None)
  Receive Date: 20120201
  Receipt Date: 20120117
  Transmission Date: 20120608
  Serious: Yes (Hospitalization)
  Sender: FDA-Public Use
  Company Number: 2011100037

PATIENT
  Age: 45 Year
  Sex: Male

DRUGS (19)
  1. TORASEMIDE (TORASEMIDE) [Suspect]
     Indication: CARDIOVASCULAR EVENT PROPHYLAXIS
     Dosage: 10 MG (10 MG, 1 IN 1 D)
     Dates: start: 20110215
  2. SPIRONOLACTONE [Suspect]
     Indication: PRODUCT USED FOR UNKNOWN INDICATION
     Dosage: 1 DOSAGE FORMS (1 DOSAGE FORMS, 1 IN 1 D)
     Dates: start: 20110504
  3. INEGY (EZETIMIBE, SIMVASTATIN) [Concomitant]
  4. ALEGLITAZAR (ALEGLITAZAR) [Suspect]
     Indication: CARDIOVASCULAR EVENT PROPHYLAXIS
     Dosage: LAST DOSE PRIOR TO HYPERKALAEMIA
     Dates: start: 20110215
  5. METFORMIN HCL [Concomitant]
  6. ASPIRIN [Concomitant]
  7. PANTOPRAVOLE (PANTOPRAZOLE) [Concomitant]
  8. OMEGA-3 ACID ETHYL ESTERS (OMEGA-3 ACID ETHYL ESTERS) [Concomitant]
  9. ALLOPURINOL [Concomitant]
  10. LIPROLOG (LISPRO INSULIN) [Concomitant]
  11. VILDAGLIPTIN (VILDAGLIPTIN) [Concomitant]
  12. DIOVAN [Concomitant]
  13. NEBIVOLOL HCL [Concomitant]
  14. AMLODIPINE [Concomitant]
  15. NITROLINGUAL (NITROGLYCERIN) [Concomitant]
  16. CLOPIDOGREL BISULFATE [Concomitant]
  17. LEVEMIR [Concomitant]
  18. ALISKIREN (ALISKIREN FUMARATE) [Concomitant]
  19. HYDROCHLOROTHIAZIDE [Concomitant]

REACTIONS (13)
  - HYPERTENSIVE CRISIS [None]
  - TREATMENT NONCOMPLIANCE [None]
  - HYPERKALAEMIA [None]
  - FLUID INTAKE REDUCED [None]
  - INFLUENZA [None]
  - VERTIGO [None]
  - VOMITING [None]
  - CAROTID ARTERY STENOSIS [None]
  - HYPOTENSION [None]
  - HYPERGLYCAEMIA [None]
  - HYPERHIDROSIS [None]
  - DIZZINESS [None]
  - NAUSEA [None]
